FAERS Safety Report 6017427-7 (Version None)
Quarter: 2008Q4

REPORT INFORMATION
  Report Type: 
  Country: None (occurrence: None)
  Receive Date: 20081223
  Receipt Date: 20081215
  Transmission Date: 20090506
  Serious: Yes (Hospitalization)
  Sender: FDA-Public Use
  Company Number: US-WYE-H07238908

PATIENT
  Sex: Female
  Weight: 59.93 kg

DRUGS (4)
  1. PRISTIQ [Suspect]
     Indication: DEPRESSION
     Route: 048
     Dates: start: 20081105, end: 20081109
  2. EFFEXOR XR [Suspect]
     Indication: DEPRESSION
     Dosage: UNKNOWN DOSE
     Route: 048
  3. EFFEXOR XR [Suspect]
     Route: 048
     Dates: start: 20081104, end: 20081109
  4. EFFEXOR XR [Suspect]
     Route: 048
     Dates: start: 20081101

REACTIONS (1)
  - SUICIDAL IDEATION [None]
